FAERS Safety Report 15854725 (Version 1)
Quarter: 2019Q1

REPORT INFORMATION
  Report Type: Spontaneous
  Country: FR (occurrence: FR)
  Receive Date: 20190122
  Receipt Date: 20190122
  Transmission Date: 20190417
  Serious: Yes (Hospitalization)
  Sender: FDA-Public Use
  Company Number: FR-JNJFOC-20190126731

PATIENT
  Age: 72 Year
  Sex: Male
  Weight: 80 kg

DRUGS (1)
  1. XARELTO [Suspect]
     Active Substance: RIVAROXABAN
     Indication: ATRIAL FIBRILLATION
     Route: 048
     Dates: end: 20181125

REACTIONS (2)
  - Aphasia [Recovered/Resolved]
  - Traumatic intracranial haemorrhage [Recovering/Resolving]

NARRATIVE: CASE EVENT DATE: 20181125
